FAERS Safety Report 7016672-1 (Version None)
Quarter: 2010Q3

REPORT INFORMATION
  Report Type: 
  Country: None (occurrence: None)
  Receive Date: 20100927
  Receipt Date: 20100916
  Transmission Date: 20110219
  Serious: Yes (Other)
  Sender: FDA-Public Use
  Company Number: US-BAXTER-2010BH024151

PATIENT
  Age: 48 Year
  Sex: Female
  Weight: 55 kg

DRUGS (12)
  1. HEPARIN SODIUM INJECTION [Suspect]
     Indication: THROMBOSIS PROPHYLAXIS
     Route: 042
  2. ENOXAPARIN SODIUM [Suspect]
     Indication: THROMBOSIS PROPHYLAXIS
     Route: 065
  3. CEPHALEXIN [Concomitant]
     Indication: CELLULITIS
     Route: 065
  4. ACYCLOVIR SODIUM [Concomitant]
     Indication: HERPES VIRUS INFECTION
     Route: 065
  5. VANCOMYCIN [Concomitant]
     Indication: NEUTROPENIA
     Route: 042
  6. PIPERACILLIN W/TAZOBACTAM [Concomitant]
     Indication: PRODUCT USED FOR UNKNOWN INDICATION
     Route: 042
  7. ALUMINIUM HYDROXIDE W/ MAGNESIUM HYDROXIDE [Concomitant]
     Indication: STOMATITIS
     Route: 065
  8. LIDOCAINE [Concomitant]
     Indication: PAIN
     Route: 065
  9. DIPHENHYDRAMINE HCL [Concomitant]
     Indication: PAIN
     Route: 065
  10. ACETAMINOPHEN AND HYDROCODONE BITARTRATE [Concomitant]
     Indication: PAIN
     Route: 065
  11. CEFTAZIDIME [Concomitant]
     Indication: PSEUDOMONAS INFECTION
     Route: 065
  12. FLUCONAZOLE [Concomitant]
     Indication: NEUTROPENIA
     Route: 065

REACTIONS (1)
  - HEPARIN-INDUCED THROMBOCYTOPENIA [None]
